FAERS Safety Report 8019247-0 (Version None)
Quarter: 2012Q1

REPORT INFORMATION
  Report Type: 
  Country: None (occurrence: None)
  Receive Date: 20120103
  Receipt Date: 20111222
  Transmission Date: 20120608
  Serious: Yes (Disabling)
  Sender: FDA-Public Use
  Company Number: GB-TEVA-314778ISR

PATIENT
  Age: 70 Year

DRUGS (3)
  1. ASPIRIN [Concomitant]
     Route: 048
  2. AMITRIPTYLINE HCL [Suspect]
     Dosage: AAH PHARMACEUTICALS LTD
     Route: 048
  3. TAMOXIFEN CITRATE [Suspect]
     Route: 048
     Dates: start: 20080101

REACTIONS (3)
  - LEFT VENTRICULAR DYSFUNCTION [None]
  - ATRIAL FLUTTER [None]
  - CARDIOMYOPATHY [None]
